FAERS Safety Report 9718891 (Version 8)
Quarter: 2014Q2

REPORT INFORMATION
  Report Type: Report from Study
  Country: GB (occurrence: GB)
  Receive Date: 20131127
  Receipt Date: 20140523
  Transmission Date: 20141212
  Serious: Yes (Hospitalization, Other)
  Sender: FDA-Public Use
  Company Number: GB-ABBVIE-13P-167-1172152-00

PATIENT
  Age: 57 Year
  Sex: Male
  Weight: 52 kg

DRUGS (11)
  1. HUMIRA [Suspect]
     Indication: UVEITIS
     Route: 058
     Dates: start: 20130820, end: 20131115
  2. CELLCEPT [Concomitant]
     Indication: UVEITIS
     Route: 048
     Dates: start: 20110510, end: 20131120
  3. LISINOPRIL [Concomitant]
     Indication: HYPERTENSION
     Route: 048
     Dates: start: 20020101, end: 20131212
  4. METFORMIN [Concomitant]
     Indication: DIABETES MELLITUS
     Route: 048
     Dates: start: 20020101, end: 20131212
  5. SIMVASTATIN [Concomitant]
     Indication: HYPERCHOLESTEROLAEMIA
     Route: 048
     Dates: start: 20020101, end: 20131121
  6. XALATAN [Concomitant]
     Indication: OCULAR HYPERTENSION
     Route: 047
     Dates: start: 20110725
  7. XALATAN [Concomitant]
     Indication: GLAUCOMA
  8. AMOXIL [Concomitant]
     Indication: PYREXIA
     Route: 048
     Dates: start: 20131021, end: 20131115
  9. LEVEMIR [Concomitant]
     Indication: DIABETES MELLITUS
     Route: 058
     Dates: start: 20121230
  10. ADCAL D3 [Concomitant]
     Indication: BONE DISORDER
     Route: 048
     Dates: start: 20110301
  11. ADCAL D3 [Concomitant]
     Indication: PROPHYLAXIS

REACTIONS (6)
  - Speech disorder [Not Recovered/Not Resolved]
  - Deafness [Not Recovered/Not Resolved]
  - Hepatic enzyme increased [Not Recovered/Not Resolved]
  - Pyrexia [Recovered/Resolved]
  - Tuberculosis [Not Recovered/Not Resolved]
  - Liver function test abnormal [Recovered/Resolved]
